FAERS Safety Report 4697437-2 (Version None)
Quarter: 2005Q2

REPORT INFORMATION
  Report Type: 
  Country: None (occurrence: None)
  Receive Date: 20050621
  Receipt Date: 20050603
  Transmission Date: 20051028
  Serious: Yes (Life-Threatening, Hospitalization)
  Sender: FDA-Public Use
  Company Number: USA050699734

PATIENT
  Age: 23 Year
  Sex: Male

DRUGS (3)
  1. ZYPREXA [Suspect]
     Indication: SCHIZOPHRENIA
     Dosage: 40 MG DAY
     Dates: start: 20040601
  2. SEROQUEL [Concomitant]
  3. CLOZAPINE [Concomitant]

REACTIONS (3)
  - BLOOD COUNT ABNORMAL [None]
  - HEPATIC ENZYME INCREASED [None]
  - PULMONARY THROMBOSIS [None]
